FAERS Safety Report 16165331 (Version 1)
Quarter: 2019Q2

REPORT INFORMATION
  Report Type: Spontaneous
  Country: NL (occurrence: NL)
  Receive Date: 20190405
  Receipt Date: 20190405
  Transmission Date: 20190711
  Serious: Yes (Hospitalization)
  Sender: FDA-Public Use
  Company Number: NL-BAUSCH-BL-2019-009874

PATIENT
  Age: 79 Year
  Sex: Female

DRUGS (2)
  1. IMIQUIMOD. [Suspect]
     Active Substance: IMIQUIMOD
     Indication: CERVICAL DYSPLASIA
     Dosage: THREE INTRAVAGINAL APPLICATION
     Route: 050
  2. IMIQUIMOD. [Suspect]
     Active Substance: IMIQUIMOD
     Indication: PRODUCT USE IN UNAPPROVED INDICATION

REACTIONS (7)
  - Hyponatraemia [Recovered/Resolved]
  - Product use in unapproved indication [Unknown]
  - Diarrhoea [Recovered/Resolved]
  - Incorrect route of product administration [Unknown]
  - Nausea [Recovered/Resolved]
  - Leukopenia [Recovered/Resolved]
  - Malaise [Recovered/Resolved]
